FAERS Safety Report 25436347 (Version 1)
Quarter: 2025Q2

REPORT INFORMATION
  Report Type: Spontaneous
  Country: GB (occurrence: GB)
  Receive Date: 20250614
  Receipt Date: 20250614
  Transmission Date: 20250717
  Serious: Yes (Other)
  Sender: TEVA
  Company Number: GB-MHRA-TPP20587487C25301881YC1749221914069

PATIENT
  Age: 68 Year
  Sex: Male
  Weight: 90 kg

DRUGS (6)
  1. RAMIPRIL [Suspect]
     Active Substance: RAMIPRIL
     Indication: Ill-defined disorder
     Route: 065
     Dates: start: 20250606
  2. AMLODIPINE [Concomitant]
     Active Substance: AMLODIPINE BESYLATE
     Indication: Ill-defined disorder
     Dosage: TAKE ONE DAILY
     Dates: start: 20250303
  3. CETRABEN [Concomitant]
     Indication: Ill-defined disorder
     Dates: start: 20240625
  4. RAMIPRIL [Concomitant]
     Active Substance: RAMIPRIL
     Indication: Ill-defined disorder
     Dosage: TAKE ONE DAILY - IN ADDITION TO THE 5MG CAPSULE FOR A TOTAL DAILY DOSE OF 7.5MG, DURATION: 30 DAYS
     Dates: start: 20250501, end: 20250530
  5. NAPROXEN [Concomitant]
     Active Substance: NAPROXEN
     Indication: Ill-defined disorder
     Dates: start: 20250303
  6. LANSOPRAZOLE [Concomitant]
     Active Substance: LANSOPRAZOLE
     Indication: Ill-defined disorder
     Dosage: 1 CAPSULE DAILY, 1 DOSAGE FORMS DAILY
     Dates: start: 20250303

REACTIONS (1)
  - Confusional state [Recovered/Resolved]

NARRATIVE: CASE EVENT DATE: 20250606
